FAERS Safety Report 18479221 (Version 2)
Quarter: 2021Q2

REPORT INFORMATION
  Report Type: Spontaneous
  Country: US (occurrence: US)
  Receive Date: 20201109
  Receipt Date: 20210428
  Transmission Date: 20210717
  Serious: No
  Sender: FDA-Public Use
  Company Number: US-SA-2020SA313669

PATIENT
  Age: 58 Year
  Sex: Female

DRUGS (14)
  1. ROSUVASTATIN. [Concomitant]
     Active Substance: ROSUVASTATIN
  2. SERTRALINE [SERTRALINE HYDROCHLORIDE] [Concomitant]
     Active Substance: SERTRALINE HYDROCHLORIDE
  3. OXYCODONE [Concomitant]
     Active Substance: OXYCODONE
  4. EZETIMIBE. [Concomitant]
     Active Substance: EZETIMIBE
  5. LEVOTHYROXINE. [Concomitant]
     Active Substance: LEVOTHYROXINE
  6. CLONAZEPAM. [Concomitant]
     Active Substance: CLONAZEPAM
  7. METFORMIN ER [Concomitant]
     Active Substance: METFORMIN HYDROCHLORIDE
  8. DUPIXENT [Suspect]
     Active Substance: DUPILUMAB
     Indication: DERMATITIS ATOPIC
     Dosage: 300 MG, QOW
     Route: 058
     Dates: start: 20191022
  9. OLOPATADINE. [Concomitant]
     Active Substance: OLOPATADINE
  10. PANTOPRAZOLE [Concomitant]
     Active Substance: PANTOPRAZOLE
  11. TRULICITY [Concomitant]
     Active Substance: DULAGLUTIDE
  12. ESTRADIOL. [Concomitant]
     Active Substance: ESTRADIOL
  13. FENOFIBRATE. [Concomitant]
     Active Substance: FENOFIBRATE
  14. MOMETASONE [Concomitant]
     Active Substance: MOMETASONE

REACTIONS (1)
  - Dermatitis atopic [Not Recovered/Not Resolved]

NARRATIVE: CASE EVENT DATE: 20201104
